FAERS Safety Report 23971862 (Version 1)
Quarter: 2024Q2

REPORT INFORMATION
  Report Type: Report from Study
  Country: JP (occurrence: JP)
  Receive Date: 20240613
  Receipt Date: 20240613
  Transmission Date: 20240717
  Serious: Yes (Other)
  Sender: FDA-Public Use
  Company Number: JP-MTPC-MTPC2023-0030715

PATIENT
  Age: 87 Year
  Sex: Male
  Weight: 53.1 kg

DRUGS (13)
  1. VADADUSTAT [Suspect]
     Active Substance: VADADUSTAT
     Indication: Nephrogenic anaemia
     Dosage: 300 MILLIGRAM, QD
     Route: 048
     Dates: start: 20221118, end: 20230508
  2. VADADUSTAT [Suspect]
     Active Substance: VADADUSTAT
     Dosage: 450 MILLIGRAM, QD
     Route: 048
     Dates: start: 20230509, end: 20230609
  3. VADADUSTAT [Suspect]
     Active Substance: VADADUSTAT
     Dosage: 600 MILLIGRAM, QD
     Route: 048
     Dates: start: 20230610
  4. EPOETIN BETA [Concomitant]
     Active Substance: ERYTHROPOIETIN
     Indication: Nephrogenic anaemia
     Dosage: 750 INTERNATIONAL UNIT, 3/WEEK
     Route: 042
     Dates: start: 20230626, end: 20230706
  5. EPOETIN BETA [Concomitant]
     Active Substance: ERYTHROPOIETIN
     Dosage: 1500 INTERNATIONAL UNIT, 3/WEEK
     Route: 042
     Dates: start: 20230707, end: 20230721
  6. EPOETIN BETA [Concomitant]
     Active Substance: ERYTHROPOIETIN
     Dosage: 3000 INTERNATIONAL UNIT, 3/WEEK
     Route: 042
     Dates: start: 20230722, end: 20231114
  7. ADALAT [Concomitant]
     Active Substance: NIFEDIPINE
     Indication: Product used for unknown indication
     Dosage: 20 MILLIGRAM, QD
     Route: 048
  8. CARVEDILOL [Concomitant]
     Active Substance: CARVEDILOL
     Indication: Product used for unknown indication
     Dosage: UNK, PRN
     Route: 048
  9. TAMSULOSIN HYDROCHLORIDE [Concomitant]
     Active Substance: TAMSULOSIN HYDROCHLORIDE
     Indication: Illness
     Dosage: 0.2 MILLIGRAM, QD
     Route: 048
  10. MEMANTINE HYDROCHLORIDE [Concomitant]
     Active Substance: MEMANTINE HYDROCHLORIDE
     Indication: Illness
     Dosage: 5 MILLIGRAM, QD
     Route: 048
  11. DUTASTERIDE [Concomitant]
     Active Substance: DUTASTERIDE
     Indication: Illness
     Dosage: 0.5 MILLIGRAM, QD
     Route: 048
  12. AMITIZA [Concomitant]
     Active Substance: LUBIPROSTONE
     Indication: Illness
     Dosage: 12 MICROGRAM, QD
     Route: 048
  13. DROXIDOPA [Concomitant]
     Active Substance: DROXIDOPA
     Indication: Illness
     Dosage: UNK, PRN
     Route: 048

REACTIONS (1)
  - Haemoglobin decreased [Recovering/Resolving]

NARRATIVE: CASE EVENT DATE: 20230907
